FAERS Safety Report 13983861 (Version 1)
Quarter: 2017Q3

REPORT INFORMATION
  Report Type: Spontaneous
  Country: US (occurrence: US)
  Receive Date: 20170918
  Receipt Date: 20170918
  Transmission Date: 20171128
  Serious: No
  Sender: FDA-Public Use
  Company Number: US-MIKART, INC.-2026674

PATIENT
  Age: 84 Year
  Sex: Female

DRUGS (12)
  1. PANTOPRAZOLE [Concomitant]
     Active Substance: PANTOPRAZOLE
  2. CRESTOR [Concomitant]
     Active Substance: ROSUVASTATIN CALCIUM
  3. BIOTIN [Concomitant]
     Active Substance: BIOTIN
  4. FISH OIL [Concomitant]
     Active Substance: FISH OIL
  5. BRILINTA [Concomitant]
     Active Substance: TICAGRELOR
  6. BAYER ASPIRIN [Concomitant]
     Active Substance: ASPIRIN
  7. PRESERVISION [Concomitant]
     Active Substance: MINERALS\VITAMINS
  8. XANAX [Concomitant]
     Active Substance: ALPRAZOLAM
  9. VITAMIN D [Concomitant]
     Active Substance: CHOLECALCIFEROL
  10. LISINOPRIL. [Concomitant]
     Active Substance: LISINOPRIL
  11. CHLORZOXAZONE. [Suspect]
     Active Substance: CHLORZOXAZONE
     Indication: MUSCLE STRAIN
     Route: 048
     Dates: start: 20170814
  12. UNSPECIFIED PAIN PATCH [Concomitant]

REACTIONS (2)
  - Constipation [Not Recovered/Not Resolved]
  - Decreased appetite [Not Recovered/Not Resolved]
